FAERS Safety Report 7945238-1 (Version None)
Quarter: 2011Q4

REPORT INFORMATION
  Report Type: 
  Country: None (occurrence: None)
  Receive Date: 20111129
  Receipt Date: 20110714
  Transmission Date: 20120403
  Serious: No
  Sender: FDA-Public Use
  Company Number: US-GLAXOSMITHKLINE-A0936836A

PATIENT
  Age: 78 Year
  Sex: Female

DRUGS (9)
  1. OMEPRAZOLE [Concomitant]
  2. PREDNISONE TAB [Concomitant]
  3. CLARITIN [Concomitant]
  4. PROAIR HFA [Concomitant]
  5. XANAX [Concomitant]
  6. BECONASE [Concomitant]
  7. FLOVENT [Suspect]
     Indication: ASTHMA
     Dosage: 1PUFF PER DAY
     Route: 055
     Dates: start: 20100528, end: 20100602
  8. ALBUTEROL [Concomitant]
  9. DIOVAN [Concomitant]

REACTIONS (1)
  - DYSPHONIA [None]
